FAERS Safety Report 19652957 (Version 1)
Quarter: 2021Q3

REPORT INFORMATION
  Report Type: Spontaneous
  Country: CN (occurrence: CN)
  Receive Date: 20210803
  Receipt Date: 20210803
  Transmission Date: 20211014
  Serious: Yes (Other)
  Sender: FDA-Public Use
  Company Number: CN-PFIZER INC-202100924072

PATIENT
  Age: 66 Year
  Sex: Female

DRUGS (3)
  1. TAZOCIN [Suspect]
     Active Substance: PIPERACILLIN SODIUM\TAZOBACTAM SODIUM
     Indication: SEPTIC SHOCK
     Dosage: 4.5 G, Q8H (EVERY 8 HOURS)
     Route: 041
     Dates: start: 20210715, end: 20210715
  2. TAZOCIN [Suspect]
     Active Substance: PIPERACILLIN SODIUM\TAZOBACTAM SODIUM
     Indication: ANTI-INFECTIVE THERAPY
  3. SODIUM CHLORIDE. [Concomitant]
     Active Substance: SODIUM CHLORIDE
     Indication: VEHICLE SOLUTION USE
     Dosage: 100 ML, Q8H (EVERY 8 HOURS)
     Route: 041
     Dates: start: 20210715, end: 20210715

REACTIONS (6)
  - Tachypnoea [Recovering/Resolving]
  - Flushing [Recovering/Resolving]
  - Dysgeusia [Recovering/Resolving]
  - Drug hypersensitivity [Recovering/Resolving]
  - Chest discomfort [Recovering/Resolving]
  - Hypoaesthesia [Recovering/Resolving]

NARRATIVE: CASE EVENT DATE: 20210715
